FAERS Safety Report 9028429 (Version 3)
Quarter: 2013Q1

REPORT INFORMATION
  Report Type: Spontaneous
  Country: US (occurrence: US)
  Receive Date: 20130124
  Receipt Date: 20130320
  Transmission Date: 20140127
  Serious: Yes (Hospitalization)
  Sender: FDA-Public Use
  Company Number: US-NAPPMUNDI-USA-2013-0097832

PATIENT
  Sex: Male

DRUGS (5)
  1. OXYCONTIN TABLETS [Suspect]
     Indication: BACK PAIN
     Dosage: 40 MG, BID
     Route: 048
  2. OXYCONTIN TABLETS [Suspect]
     Dosage: 60 MG, BID
     Route: 048
  3. OXYCODONE HYDROCHLORIDE (SIMILAR TO NDA 22-272) [Concomitant]
     Indication: PAIN
     Dosage: 30 MG, QID
     Route: 048
  4. DIAZEPAM [Concomitant]
     Indication: INSOMNIA
     Dosage: UNK, TID
  5. DIAZEPAM [Concomitant]
     Indication: STRESS

REACTIONS (2)
  - Surgery [Unknown]
  - Drug tolerance [Unknown]
